FAERS Safety Report 4720769-6 (Version None)
Quarter: 2005Q3

REPORT INFORMATION
  Report Type: 
  Country: None (occurrence: None)
  Receive Date: 20050719
  Receipt Date: 20050705
  Transmission Date: 20060218
  Serious: Yes (Death)
  Sender: FDA-Public Use
  Company Number: US_0507119834

PATIENT
  Age: 46 Year
  Sex: Male

DRUGS (8)
  1. ZYPREXA [Suspect]
     Indication: SCHIZOPHRENIA
     Dates: start: 20010901
  2. PAXIL [Concomitant]
  3. EFFEXOR [Concomitant]
  4. HALDOL (HALOPERIDOL DECANOATE) [Concomitant]
  5. ABILIFY [Concomitant]
  6. VICODIN [Concomitant]
  7. COGENTIN [Concomitant]
  8. GEODON [Concomitant]

REACTIONS (1)
  - DIABETES MELLITUS [None]
